FAERS Safety Report 8619715 (Version 3)
Quarter: 2013Q1

REPORT INFORMATION
  Report Type: Report from Study
  Country: JP (occurrence: JP)
  Receive Date: 20120618
  Receipt Date: 20130308
  Transmission Date: 20140127
  Serious: Yes (Hospitalization, Other)
  Sender: FDA-Public Use
  Company Number: JP-ROCHE-1076894

PATIENT
  Age: 60 Year
  Sex: Female
  Weight: 39 kg

DRUGS (19)
  1. TOCILIZUMAB [Suspect]
     Indication: RHEUMATOID ARTHRITIS
     Route: 041
     Dates: start: 20080513, end: 20080610
  2. TOCILIZUMAB [Suspect]
     Indication: RHEUMATOID ARTHRITIS
     Route: 041
     Dates: start: 20090526, end: 20090623
  3. TOCILIZUMAB [Suspect]
     Indication: RHEUMATOID ARTHRITIS
     Route: 041
     Dates: start: 20091130
  4. PREDNISOLONE [Suspect]
     Indication: RHEUMATOID ARTHRITIS
     Dosage: UNCERTAIN DOSAGE (LESS THAN 5 MG)
     Route: 048
     Dates: start: 20090331, end: 20091018
  5. PREDNISOLONE [Suspect]
     Route: 048
     Dates: start: 20091019, end: 20101022
  6. PREDNISOLONE [Suspect]
     Route: 048
     Dates: start: 20100223, end: 20100323
  7. PREDNISOLONE [Suspect]
     Route: 048
     Dates: start: 20100324, end: 20100614
  8. PREDNISOLONE [Suspect]
     Route: 048
     Dates: start: 20100615, end: 20100705
  9. PREDNISOLONE [Suspect]
     Route: 048
     Dates: start: 20100706, end: 20100929
  10. METHOTREXATE [Concomitant]
     Indication: RHEUMATOID ARTHRITIS
     Dosage: AMOUNT 2
     Route: 048
  11. LIMETHASON [Concomitant]
     Indication: RHEUMATOID ARTHRITIS
     Route: 042
     Dates: start: 20080610, end: 20080610
  12. GASTER [Concomitant]
     Indication: PROPHYLAXIS
     Route: 048
     Dates: start: 20030929
  13. ALFAROL [Concomitant]
     Indication: OSTEOPOROSIS
     Route: 048
     Dates: start: 20030901
  14. BENET [Concomitant]
     Indication: OSTEOPOROSIS
     Route: 048
     Dates: start: 20070724
  15. FOLIAMIN [Concomitant]
     Indication: PROPHYLAXIS
     Route: 048
  16. LOXONIN [Concomitant]
     Indication: RHEUMATOID ARTHRITIS
     Route: 048
     Dates: start: 20080527
  17. MUCOSTA [Concomitant]
     Indication: PROPHYLAXIS
     Route: 048
     Dates: start: 20080527
  18. HUMIRA [Concomitant]
     Indication: RHEUMATOID ARTHRITIS
     Dosage: DOSAGE IS UNCERTAIN.
     Route: 042
     Dates: start: 20080708, end: 20081125
  19. PROGRAF [Concomitant]
     Indication: RHEUMATOID ARTHRITIS
     Route: 048
     Dates: start: 20090509, end: 20091214

REACTIONS (2)
  - Joint injury [Unknown]
  - Fall [Unknown]
